FAERS Safety Report 13109929 (Version 1)
Quarter: 2017Q1

REPORT INFORMATION
  Report Type: Spontaneous
  Country: US (occurrence: US)
  Receive Date: 20170112
  Receipt Date: 20170112
  Transmission Date: 20170428
  Serious: Yes (Death, Other)
  Sender: FDA-Public Use
  Company Number: US-ROCHE-1102966

PATIENT
  Sex: Male

DRUGS (13)
  1. ACTIVASE [Suspect]
     Active Substance: ALTEPLASE
     Indication: MYOCARDIAL INFARCTION
     Route: 042
  2. VASOTEC [Concomitant]
     Active Substance: ENALAPRIL MALEATE
  3. ASPIRIN. [Concomitant]
     Active Substance: ASPIRIN
  4. NITROGLYCERIN. [Concomitant]
     Active Substance: NITROGLYCERIN
  5. DOBUTREX [Concomitant]
     Active Substance: DOBUTAMINE HYDROCHLORIDE
  6. DOPAMINE [Concomitant]
     Active Substance: DOPAMINE\DOPAMINE HYDROCHLORIDE
  7. HEPARIN [Concomitant]
     Active Substance: HEPARIN SODIUM
  8. PRIMAXIN IV [Concomitant]
     Active Substance: CILASTATIN SODIUM\IMIPENEM
     Route: 042
  9. DEMADEX [Concomitant]
     Active Substance: TORSEMIDE
  10. LANOXIN [Concomitant]
     Active Substance: DIGOXIN
  11. CEFTRIAXONE. [Concomitant]
     Active Substance: CEFTRIAXONE
  12. ZAROXOLYN [Concomitant]
     Active Substance: METOLAZONE
  13. ZANTAC [Concomitant]
     Active Substance: RANITIDINE HYDROCHLORIDE

REACTIONS (4)
  - Ventricular tachycardia [Unknown]
  - Cardiac arrest [Fatal]
  - Ventricular fibrillation [Unknown]
  - Hypotension [Unknown]
